FAERS Safety Report 17366855 (Version 1)
Quarter: 2020Q1

REPORT INFORMATION
  Report Type: Report from Study
  Country: BR (occurrence: BR)
  Receive Date: 20200204
  Receipt Date: 20200204
  Transmission Date: 20200409
  Serious: Yes (Hospitalization, Other)
  Sender: FDA-Public Use
  Company Number: BR-JNJFOC-20200142997

PATIENT
  Age: 68 Year
  Sex: Female

DRUGS (1)
  1. REMICADE [Suspect]
     Active Substance: INFLIXIMAB
     Indication: RHEUMATOID ARTHRITIS
     Dosage: WEEKS 0, 2 AND 6
     Route: 042
     Dates: start: 20190802, end: 20190913

REACTIONS (16)
  - Paralysis [Unknown]
  - Infusion related reaction [Unknown]
  - Cough [Unknown]
  - Vomiting [Unknown]
  - Pain [Unknown]
  - Chills [Unknown]
  - Blindness [Unknown]
  - Dyspnoea [Unknown]
  - Heart rate decreased [Unknown]
  - Asthenia [Unknown]
  - Cardiac disorder [Unknown]
  - Weight decreased [Unknown]
  - Blood pressure decreased [Unknown]
  - Rheumatoid arthritis [Not Recovered/Not Resolved]
  - Headache [Unknown]
  - Muscle spasms [Unknown]

NARRATIVE: CASE EVENT DATE: 2019
